FAERS Safety Report 7158401-7 (Version None)
Quarter: 2010Q4

REPORT INFORMATION
  Report Type: 
  Country: None (occurrence: None)
  Receive Date: 20101214
  Receipt Date: 20100603
  Transmission Date: 20110411
  Serious: No
  Sender: FDA-Public Use
  Company Number: US-ASTRAZENECA-2010SE25663

PATIENT
  Age: 68 Year
  Sex: Female

DRUGS (2)
  1. CRESTOR [Suspect]
     Route: 048
     Dates: start: 20090401, end: 20091101
  2. CRESTOR [Suspect]
     Route: 048
     Dates: start: 20091101

REACTIONS (3)
  - ABNORMAL DREAMS [None]
  - BLOOD CHOLESTEROL ABNORMAL [None]
  - INSOMNIA [None]
